FAERS Safety Report 11534026 (Version 1)
Quarter: 2015Q3

REPORT INFORMATION
  Report Type: Report from Study
  Country: US (occurrence: US)
  Receive Date: 20150922
  Receipt Date: 20150922
  Transmission Date: 20151125
  Serious: No
  Sender: FDA-Public Use
  Company Number: PHEH2015US017090

PATIENT
  Sex: Female
  Weight: 104.31 kg

DRUGS (1)
  1. EXTAVIA [Suspect]
     Active Substance: INTERFERON BETA-1B
     Indication: MULTIPLE SCLEROSIS
     Dosage: 0.25 ML (0.0625 MG, WEEK 1-2), QOD
     Route: 058
     Dates: start: 20150731

REACTIONS (9)
  - Movement disorder [Unknown]
  - Injection site erythema [Not Recovered/Not Resolved]
  - Lethargy [Unknown]
  - Wrong device used [Unknown]
  - Limb discomfort [Not Recovered/Not Resolved]
  - Contusion [Unknown]
  - Pain [Not Recovered/Not Resolved]
  - Headache [Unknown]
  - Peripheral swelling [Not Recovered/Not Resolved]
